FAERS Safety Report 9265879 (Version 1)
Quarter: 2013Q2

REPORT INFORMATION
  Report Type: Spontaneous
  Country: BR (occurrence: BR)
  Receive Date: 20130501
  Receipt Date: 20130501
  Transmission Date: 20140414
  Serious: Yes (Other)
  Sender: FDA-Public Use
  Company Number: BR-ASTRAZENECA-2013SE28743

PATIENT
  Age: 941 Month
  Sex: Male

DRUGS (2)
  1. SYMBICORT TURBUHALER [Suspect]
     Indication: DYSPNOEA
     Dosage: 160/4.5 MCG, TWO TIMES DAILY
     Route: 055
  2. SYMBICORT TURBUHALER [Suspect]
     Indication: BRONCHITIS
     Dosage: 160/4.5 MCG, TWO TIMES DAILY
     Route: 055

REACTIONS (3)
  - Anaemia [Unknown]
  - Abdominal pain upper [Not Recovered/Not Resolved]
  - Intestinal polyp [Not Recovered/Not Resolved]
